FAERS Safety Report 9504004 (Version 1)
Quarter: 2013Q3

REPORT INFORMATION
  Report Type: Spontaneous
  Country: US (occurrence: US)
  Receive Date: 20130906
  Receipt Date: 20130906
  Transmission Date: 20140515
  Serious: Yes (Other)
  Sender: FDA-Public Use
  Company Number: US-AMGEN-USASP2013062562

PATIENT
  Age: 41 Year
  Sex: Female
  Weight: 63.49 kg

DRUGS (2)
  1. ENBREL [Suspect]
     Indication: PRODUCT USED FOR UNKNOWN INDICATION
     Dosage: 50 MG/ML, QWK
     Route: 058
  2. ORENCIA [Concomitant]
     Dosage: 125 MG/ML, UNK

REACTIONS (1)
  - Malignant melanoma [Unknown]
